FAERS Safety Report 4374714-6 (Version None)
Quarter: 2004Q2

REPORT INFORMATION
  Report Type: 
  Country: None (occurrence: None)
  Receive Date: 20040604
  Receipt Date: 20040524
  Transmission Date: 20050107
  Serious: Yes (Hospitalization, Disabling)
  Sender: FDA-Public Use
  Company Number: 2004034344

PATIENT
  Age: 44 Year
  Sex: Female
  Weight: 55 kg

DRUGS (4)
  1. TRESLEEN (SERTRALINE) [Suspect]
     Indication: DEPRESSION
     Dosage: 50 MG (50 MG, 1 IN 1 D), ORAL
     Route: 048
     Dates: start: 20020201
  2. MIRTAZAPINE [Concomitant]
  3. CHLORPROTHIXENE HYDROCHLORIDE [Concomitant]
  4. OLANZAPINE [Concomitant]

REACTIONS (3)
  - AGITATION [None]
  - DYSKINESIA [None]
  - PAIN IN EXTREMITY [None]
